FAERS Safety Report 8235535-7 (Version None)
Quarter: 2012Q1

REPORT INFORMATION
  Report Type: 
  Country: None (occurrence: None)
  Receive Date: 20120322
  Receipt Date: 20120314
  Transmission Date: 20120608
  Serious: Yes (Hospitalization, Disabling, Other)
  Sender: FDA-Public Use
  Company Number: AUR-APL-2012-01428

PATIENT
  Age: 69 Year
  Sex: Male
  Weight: 100 kg

DRUGS (7)
  1. CIPROFLOXACIN [Suspect]
     Indication: BACK PAIN
     Dosage: 1000 MG (500 MG, 2 IN 1 D), ORAL
     Route: 048
     Dates: start: 20120128, end: 20120201
  2. VENOFER [Concomitant]
  3. ALFACALCIDOL (ALFACALCIDOL) [Concomitant]
  4. BICALUTAMIDE [Concomitant]
  5. FOSRENOL [Concomitant]
  6. LANSOPRAZOLE [Concomitant]
  7. BUMETANIDE [Concomitant]

REACTIONS (3)
  - TENDON RUPTURE [None]
  - GAIT DISTURBANCE [None]
  - WEIGHT BEARING DIFFICULTY [None]
